FAERS Safety Report 6814529-X (Version None)
Quarter: 2010Q3

REPORT INFORMATION
  Report Type: 
  Country: None (occurrence: None)
  Receive Date: 20100702
  Receipt Date: 20100628
  Transmission Date: 20110219
  Serious: Yes (Life-Threatening, Other)
  Sender: FDA-Public Use
  Company Number: GB-TEVA-239134ISR

PATIENT
  Age: 43 Year
  Sex: Female

DRUGS (1)
  1. MELOXICAM [Suspect]
     Indication: PAIN IN EXTREMITY
     Route: 048
     Dates: end: 20100612

REACTIONS (2)
  - CAROTID ARTERY DISSECTION [None]
  - MYOCARDIAL INFARCTION [None]
